FAERS Safety Report 5267149-5 (Version None)
Quarter: 2007Q1

REPORT INFORMATION
  Report Type: 
  Country: None (occurrence: None)
  Receive Date: 20070316
  Receipt Date: 20070306
  Transmission Date: 20070707
  Serious: Yes (Death)
  Sender: FDA-Public Use
  Company Number: US-AVENTIS-200711700US

PATIENT
  Sex: Female

DRUGS (2)
  1. ARAVA [Suspect]
     Dosage: DOSE: UNK
  2. REMICADE [Suspect]
     Dosage: DOSE: UNK

REACTIONS (2)
  - DEATH [None]
  - ILL-DEFINED DISORDER [None]
